FAERS Safety Report 16296288 (Version 1)
Quarter: 2019Q2

REPORT INFORMATION
  Report Type: Spontaneous
  Country: US (occurrence: US)
  Receive Date: 20190510
  Receipt Date: 20190510
  Transmission Date: 20190711
  Serious: No
  Sender: FDA-Public Use
  Company Number: US-PFIZER INC-2019192624

PATIENT
  Age: 27 Year
  Sex: Male

DRUGS (1)
  1. MANNITOL. [Suspect]
     Active Substance: MANNITOL
     Dosage: UNK

REACTIONS (3)
  - Pollakiuria [Unknown]
  - Bladder irritation [Unknown]
  - Cystitis interstitial [Unknown]
